FAERS Safety Report 12758787 (Version 1)
Quarter: 2016Q3

REPORT INFORMATION
  Report Type: Spontaneous
  Country: US (occurrence: US)
  Receive Date: 20160919
  Receipt Date: 20160919
  Transmission Date: 20161109
  Serious: Yes (Other)
  Sender: FDA-Public Use
  Company Number: US-CORDEN PHARMA LATINA S.P.A.-US-2016COR000206

PATIENT
  Age: 48 Year
  Sex: Male

DRUGS (5)
  1. CARBOPLATIN. [Suspect]
     Active Substance: CARBOPLATIN
     Indication: ANAPLASTIC LARGE CELL LYMPHOMA T- AND NULL-CELL TYPES STAGE IV
     Dosage: UNK, [THREE CYCLES]
  2. CRIZOTINIB [Suspect]
     Active Substance: CRIZOTINIB
     Dosage: 250 MG, QD
     Route: 048
  3. ETOPOSIDE. [Suspect]
     Active Substance: ETOPOSIDE
     Indication: ANAPLASTIC LARGE CELL LYMPHOMA T- AND NULL-CELL TYPES STAGE IV
     Dosage: UNK, [THREE CYCLES]
  4. IFOSFAMIDE. [Suspect]
     Active Substance: IFOSFAMIDE
     Indication: ANAPLASTIC LARGE CELL LYMPHOMA T- AND NULL-CELL TYPES STAGE IV
     Dosage: UNK, [THREE CYCLES]
  5. CRIZOTINIB [Suspect]
     Active Substance: CRIZOTINIB
     Indication: ANAPLASTIC LARGE CELL LYMPHOMA T- AND NULL-CELL TYPES STAGE IV
     Dosage: 250 MG, BID

REACTIONS (4)
  - Renal failure [Recovering/Resolving]
  - Tubulointerstitial nephritis [Recovering/Resolving]
  - Pyrexia [Recovered/Resolved]
  - Lymphadenopathy [Recovered/Resolved]
